FAERS Safety Report 18415657 (Version 1)
Quarter: 2020Q4

REPORT INFORMATION
  Report Type: Spontaneous
  Country: US (occurrence: US)
  Receive Date: 20201022
  Receipt Date: 20201022
  Transmission Date: 20210114
  Serious: No
  Sender: FDA-Public Use
  Company Number: US-ELI_LILLY_AND_COMPANY-US202005004088

PATIENT

DRUGS (2)
  1. GALCANEZUMAB 100MG [Suspect]
     Active Substance: GALCANEZUMAB
     Indication: CLUSTER HEADACHE
     Route: 065
  2. GALCANEZUMAB 100MG [Suspect]
     Active Substance: GALCANEZUMAB
     Indication: CLUSTER HEADACHE
     Route: 065

REACTIONS (1)
  - Drug ineffective [Unknown]
